FAERS Safety Report 5315209-2 (Version None)
Quarter: 2007Q2

REPORT INFORMATION
  Report Type: 
  Country: None (occurrence: None)
  Receive Date: 20070502
  Receipt Date: 20070425
  Transmission Date: 20071010
  Serious: Yes (Other)
  Sender: FDA-Public Use
  Company Number: US-MERCK-0703USA02168

PATIENT
  Age: 6 Year
  Sex: Female
  Weight: 21 kg

DRUGS (1)
  1. SINGULAIR [Suspect]
     Indication: HYPERSENSITIVITY
     Route: 048
     Dates: start: 20060101, end: 20070301

REACTIONS (1)
  - PETIT MAL EPILEPSY [None]
